FAERS Safety Report 10190331 (Version 1)
Quarter: 2014Q2

REPORT INFORMATION
  Report Type: Spontaneous
  Country: US (occurrence: US)
  Receive Date: 20140522
  Receipt Date: 20140522
  Transmission Date: 20141212
  Serious: No
  Sender: FDA-Public Use
  Company Number: US-009507513-1405USA007743

PATIENT
  Age: 48 Year
  Sex: Male

DRUGS (8)
  1. PEGINTRON [Suspect]
     Indication: HEPATITIS C
     Dosage: 150 MICROGRAM, QW
     Route: 058
     Dates: start: 20140422
  2. RIBAVIRIN (WARRICK) [Suspect]
     Indication: HEPATITIS C
     Route: 048
  3. SOVALDI [Concomitant]
  4. ALBUTEROL [Concomitant]
  5. SINGULAIR [Concomitant]
  6. SYMBICORT [Concomitant]
  7. PHENERGAN (DIBROMPROPAMIDINE ISETHIONATE (+) PROMETHAZINE) [Concomitant]
  8. VITAMINS (UNSPECIFIED) [Concomitant]

REACTIONS (5)
  - Pyrexia [Unknown]
  - Feeling cold [Unknown]
  - Tremor [Unknown]
  - Chills [Unknown]
  - Blood pressure abnormal [Unknown]
